FAERS Safety Report 7135681-5 (Version None)
Quarter: 2010Q4

REPORT INFORMATION
  Report Type: 
  Country: None (occurrence: None)
  Receive Date: 20101203
  Receipt Date: 20101124
  Transmission Date: 20110411
  Serious: Yes (Death, Hospitalization)
  Sender: FDA-Public Use
  Company Number: US-ROCHE-745759

PATIENT
  Age: 52 Year
  Sex: Male

DRUGS (22)
  1. BEVACIZUMAB [Suspect]
     Dosage: CYCLE 4: 31 DEC 2008, INTERUPPTED, LAST DOSE: 04 JAN 2009
     Route: 042
     Dates: start: 20081029
  2. TOPOTECAN [Suspect]
     Dosage: 5 CONSECUTIVE DAYS ON DAYS 1-5, LAST DOSE: 04 JAN 2009
     Route: 048
     Dates: start: 20081029
  3. PROCHLORPERAZINE [Concomitant]
  4. LORTAB [Concomitant]
  5. LORAZEPAM [Concomitant]
  6. DOCUSATE SODIUM [Concomitant]
  7. OMEPRAZOLE [Concomitant]
  8. ALLOPURINOL [Concomitant]
  9. OXYCODONE HYDROCHLORIDE [Concomitant]
  10. PARACETAMOL [Concomitant]
  11. LORAZEPAM [Concomitant]
  12. ALUMINUM HYDROXIDE GEL [Concomitant]
  13. NYSTATIN [Concomitant]
  14. FLUTICASONE PROPIONATE [Concomitant]
  15. SALMETEROL XINAFOATE [Concomitant]
  16. DARBEPOETIN ALFA [Concomitant]
  17. DOLASETRON MESYLATE [Concomitant]
  18. DIPHENHYDRAMINE HYDROCHLORIDE [Concomitant]
  19. MORPHINE SULFATE [Concomitant]
  20. LIDOCAINE [Concomitant]
  21. PROMETHAZINE [Concomitant]
  22. MEGESTROL ACETATE [Concomitant]

REACTIONS (2)
  - DEATH [None]
  - INAPPROPRIATE ANTIDIURETIC HORMONE SECRETION [None]
